FAERS Safety Report 9185333 (Version 3)
Quarter: 2014Q1

REPORT INFORMATION
  Report Type: Spontaneous
  Country: US (occurrence: US)
  Receive Date: 20130325
  Receipt Date: 20140121
  Transmission Date: 20141002
  Serious: Yes (Hospitalization)
  Sender: FDA-Public Use
  Company Number: US-BIOGENIDEC-2013BI026651

PATIENT
  Age: 35 Year
  Sex: Female

DRUGS (11)
  1. AVONEX [Suspect]
     Indication: MULTIPLE SCLEROSIS
     Route: 030
  2. AVONEX [Suspect]
     Indication: MULTIPLE SCLEROSIS
     Route: 030
     Dates: start: 200501
  3. AVONEX [Suspect]
     Indication: MULTIPLE SCLEROSIS
     Route: 030
     Dates: end: 201110
  4. AVONEX [Suspect]
     Indication: MULTIPLE SCLEROSIS
     Route: 030
     Dates: start: 20140111
  5. TYSABRI [Concomitant]
     Route: 042
  6. TYSABRI [Concomitant]
     Route: 042
     Dates: start: 20130519, end: 20131219
  7. NEUPOGEN [Concomitant]
  8. PROVIGIL [Concomitant]
     Indication: FATIGUE
  9. NORCO [Concomitant]
     Indication: PAIN IN EXTREMITY
  10. MOTRIN [Concomitant]
     Indication: PAIN IN EXTREMITY
  11. OXYCONTIN [Concomitant]
     Indication: PAIN IN EXTREMITY

REACTIONS (13)
  - Breast cancer stage III [Recovered/Resolved]
  - Incision site haematoma [Recovered/Resolved]
  - Septic shock [Recovered/Resolved]
  - Wolff-Parkinson-White syndrome [Unknown]
  - Faecal incontinence [Recovered/Resolved]
  - Neutropenia [Recovered/Resolved]
  - Pyrexia [Recovered/Resolved]
  - Ejection fraction decreased [Unknown]
  - Multiple sclerosis [Not Recovered/Not Resolved]
  - Influenza like illness [Recovered/Resolved]
  - Muscle spasticity [Not Recovered/Not Resolved]
  - Anaemia [Not Recovered/Not Resolved]
  - Nausea [Recovered/Resolved]
